FAERS Safety Report 11140609 (Version 1)
Quarter: 2015Q2

REPORT INFORMATION
  Report Type: Spontaneous
  Country: US (occurrence: US)
  Receive Date: 20150525
  Receipt Date: 20150525
  Transmission Date: 20150821
  Serious: No
  Sender: FDA-Public Use
  Company Number: US-JNJFOC-20140619752

PATIENT
  Age: 31 Year
  Sex: Male

DRUGS (6)
  1. VISTARIL [Concomitant]
     Active Substance: HYDROXYZINE PAMOATE
     Route: 048
  2. RISPERDAL CONSTA [Suspect]
     Active Substance: RISPERIDONE
     Indication: SCHIZOPHRENIA
     Route: 030
     Dates: start: 20120727, end: 20140410
  3. ATIVAN [Concomitant]
     Active Substance: LORAZEPAM
     Route: 048
  4. RISPERDAL CONSTA [Suspect]
     Active Substance: RISPERIDONE
     Indication: SCHIZOPHRENIA
     Route: 030
  5. AMBIEN [Concomitant]
     Active Substance: ZOLPIDEM TARTRATE
     Route: 048
  6. RISPERIDAL [Concomitant]
     Active Substance: RISPERIDONE
     Route: 048

REACTIONS (6)
  - Drug ineffective [Unknown]
  - Psychiatric decompensation [Unknown]
  - Foreign body [Recovered/Resolved]
  - Inappropriate schedule of drug administration [Unknown]
  - Underdose [Unknown]
  - Device malfunction [Unknown]

NARRATIVE: CASE EVENT DATE: 2014
